FAERS Safety Report 4952493-9 (Version None)
Quarter: 2006Q1

REPORT INFORMATION
  Report Type: 
  Country: None (occurrence: None)
  Receive Date: 20060317
  Receipt Date: 20060304
  Transmission Date: 20060701
  Serious: Yes (Hospitalization)
  Sender: FDA-Public Use
  Company Number: 2006032606

PATIENT
  Age: 61 Year
  Sex: Male

DRUGS (5)
  1. SUTENT [Suspect]
     Indication: RENAL CELL CARCINOMA STAGE UNSPECIFIED
     Dosage: 50 MG (50 MG, 1 IN 1 D), ORAL
     Route: 048
     Dates: start: 20051216
  2. FELODIPINE [Concomitant]
  3. SELECTOL (CELIPROLOL HYDROCHLORIDE) [Concomitant]
  4. ALLOPURINOL [Concomitant]
  5. COAPROVEL (HYDROCHLOROTHIAZIDE, IRBESARTAN) [Concomitant]

REACTIONS (3)
  - HYPERTENSION [None]
  - NEPHROPATHY TOXIC [None]
  - RENAL FAILURE [None]
